FAERS Safety Report 16152309 (Version 5)
Quarter: 2019Q2

REPORT INFORMATION
  Report Type: Spontaneous
  Country: US (occurrence: US)
  Receive Date: 20190403
  Receipt Date: 20190627
  Transmission Date: 20190711
  Serious: Yes (Hospitalization, Other)
  Sender: FDA-Public Use
  Company Number: US-GLAXOSMITHKLINE-US2019GSK056892

PATIENT
  Sex: Female

DRUGS (7)
  1. FLOLAN [Suspect]
     Active Substance: EPOPROSTENOL SODIUM
     Indication: PULMONARY ARTERIAL HYPERTENSION
     Dosage: 44 DF, CO
     Route: 042
     Dates: start: 20141212
  2. FLOLAN [Suspect]
     Active Substance: EPOPROSTENOL SODIUM
     Dosage: 44 NG/KG/MIN, CO
     Dates: start: 20141212
  3. FLOLAN DILUENT PH 12 [Suspect]
     Active Substance: GLYCINE\MANNITOL\SODIUM CHLORIDE
     Indication: PULMONARY ARTERIAL HYPERTENSION
     Dosage: UNK
     Route: 042
     Dates: start: 20170201
  4. FLOLAN DILUENT PH 12 [Suspect]
     Active Substance: GLYCINE\MANNITOL\SODIUM CHLORIDE
     Dosage: UNK
     Dates: start: 20170202
  5. FLOLAN [Suspect]
     Active Substance: EPOPROSTENOL SODIUM
     Dosage: 77 NG/KG/MIN, CO
     Route: 042
     Dates: start: 201904
  6. FLOLAN [Suspect]
     Active Substance: EPOPROSTENOL SODIUM
     Dosage: 79 NG/KG/MIN, CO
     Route: 042
     Dates: start: 20141212
  7. FLOLAN DILUENT PH 12 [Suspect]
     Active Substance: GLYCINE\MANNITOL\SODIUM CHLORIDE
     Dosage: UNK
     Route: 042
     Dates: start: 20170201

REACTIONS (6)
  - Asthenia [Unknown]
  - Hospitalisation [Unknown]
  - Abdominal distension [Unknown]
  - Dyspnoea [Unknown]
  - Paracentesis [Unknown]
  - Right ventricular failure [Unknown]
